FAERS Safety Report 7586353-4 (Version None)
Quarter: 2011Q2

REPORT INFORMATION
  Report Type: 
  Country: None (occurrence: None)
  Receive Date: 20110624
  Receipt Date: 20110608
  Transmission Date: 20111010
  Serious: Yes (Hospitalization)
  Sender: FDA-Public Use
  Company Number: DSA_46895_2011

PATIENT
  Age: 89 Year
  Sex: Female

DRUGS (11)
  1. SPIRONOLACTONE [Suspect]
     Indication: ESSENTIAL HYPERTENSION
     Dosage: (25 MG QD ORAL)
     Route: 048
  2. ACETAMINOPHEN [Concomitant]
  3. HIRUDOID /00723702/ [Concomitant]
  4. METOPROLOL TARTRATE [Concomitant]
  5. NITROMEX [Concomitant]
  6. ENALAPRIL MALEATE [Suspect]
     Indication: ESSENTIAL HYPERTENSION
     Dosage: (2.5 MG QD ORAL), (DF)
     Route: 048
  7. DIGOXIN [Concomitant]
  8. ALLOPURINOL [Concomitant]
  9. IMPUGAN (IMPUGAN - FUROSEMIDE ) 40 MG (NOT SPECIFIED) [Suspect]
     Indication: ESSENTIAL HYPERTENSION
     Dosage: (40 MG QD ORAL)
     Route: 048
     Dates: end: 20110404
  10. PANOCOD [Concomitant]
  11. WARFARIN SODIUM [Concomitant]

REACTIONS (3)
  - VARICOSE VEIN [None]
  - CUTANEOUS VASCULITIS [None]
  - HYPERKALAEMIA [None]
